FAERS Safety Report 20303516 (Version 2)
Quarter: 2022Q1

REPORT INFORMATION
  Report Type: Report from Study
  Country: CA (occurrence: CA)
  Receive Date: 20220106
  Receipt Date: 20220303
  Transmission Date: 20220423
  Serious: Yes (Hospitalization, Other)
  Sender: FDA-Public Use
  Company Number: CA-NOVARTISPH-NVSC2021CA184898

PATIENT
  Age: 2 Year
  Sex: Female
  Weight: 12.7 kg

DRUGS (2)
  1. TRAMETINIB [Suspect]
     Active Substance: TRAMETINIB
     Indication: Neurofibroma
     Dosage: 0.375 MG
     Route: 048
     Dates: start: 20201202, end: 20210909
  2. TRAMETINIB [Suspect]
     Active Substance: TRAMETINIB
     Dosage: 0.375 MG
     Route: 048
     Dates: start: 20210922

REACTIONS (4)
  - Pain [Recovered/Resolved]
  - Stomatitis [Recovered/Resolved]
  - Pancreatitis [Recovered/Resolved]
  - Pyrexia [Recovered/Resolved]

NARRATIVE: CASE EVENT DATE: 20210802
